FAERS Safety Report 10645069 (Version 1)
Quarter: 2014Q4

REPORT INFORMATION
  Report Type: Spontaneous
  Country: US (occurrence: None)
  Receive Date: 20141210
  Receipt Date: 20141210
  Transmission Date: 20150529
  Serious: No
  Sender: FDA-Public Use
  Company Number: None

PATIENT
  Age: 16 Month
  Sex: Female
  Weight: 14.06 kg

DRUGS (2)
  1. AUGMENTIN [Suspect]
     Active Substance: AMOXICILLIN\CLAVULANATE POTASSIUM
     Indication: CONJUNCTIVITIS
     Dosage: 3/4 TEASPOONFUL TWICE DAILY TAKEN BY MOUTH
     Route: 048
     Dates: start: 20141208, end: 20141208
  2. AUGMENTIN [Suspect]
     Active Substance: AMOXICILLIN\CLAVULANATE POTASSIUM
     Indication: EAR INFECTION
     Dosage: 3/4 TEASPOONFUL TWICE DAILY TAKEN BY MOUTH
     Route: 048
     Dates: start: 20141208, end: 20141208

REACTIONS (4)
  - Rash pruritic [None]
  - Erythema [None]
  - Rash [None]
  - Rash generalised [None]

NARRATIVE: CASE EVENT DATE: 20141208
